FAERS Safety Report 8862661 (Version 1)
Quarter: 2012Q4

REPORT INFORMATION
  Report Type: 
  Country: GB (occurrence: GB)
  Receive Date: 20121026
  Receipt Date: 20121026
  Transmission Date: 20130627
  Serious: Yes (Hospitalization)
  Sender: FDA-Public Use
  Company Number: GB-PFIZER INC-2012266263

PATIENT
  Age: 59 Year
  Sex: Male

DRUGS (6)
  1. SERTRALINE HCL [Suspect]
     Dosage: 50 mg, UNK
     Route: 048
     Dates: start: 20120926, end: 20120926
  2. PREGABALIN [Concomitant]
     Dosage: 200 mg, 2x/day
  3. LISINOPRIL [Concomitant]
     Dosage: 5mg daily
  4. SIMVASTATIN [Concomitant]
     Dosage: 40mg daily
  5. OXYBUTYNIN [Concomitant]
     Dosage: 5mg daily
  6. IBUPROFEN [Concomitant]
     Dosage: 400 mg, 3x/day

REACTIONS (2)
  - Atrial fibrillation [Recovered/Resolved]
  - Syncope [Recovered/Resolved]
